FAERS Safety Report 24064607 (Version 1)
Quarter: 2024Q3

REPORT INFORMATION
  Report Type: Spontaneous
  Country: US (occurrence: US)
  Receive Date: 20240709
  Receipt Date: 20240709
  Transmission Date: 20241017
  Serious: Yes (Other)
  Sender: ACCORD
  Company Number: US-MLMSERVICE-20240621-PI105671-00232-1

PATIENT
  Age: 76 Year
  Sex: Female

DRUGS (2)
  1. MYCOPHENOLATE MOFETIL [Suspect]
     Active Substance: MYCOPHENOLATE MOFETIL
     Indication: Product used for unknown indication
  2. SIROLIMUS [Concomitant]
     Active Substance: SIROLIMUS

REACTIONS (3)
  - Diverticulum oesophageal [Not Recovered/Not Resolved]
  - Oesophagitis ulcerative [Recovered/Resolved]
  - Weight decreased [Unknown]
